APPROVED DRUG PRODUCT: COUMADIN
Active Ingredient: WARFARIN SODIUM
Strength: 6MG
Dosage Form/Route: TABLET;ORAL
Application: N009218 | Product #026
Applicant: BRISTOL MYERS SQUIBB PHARMA CO
Approved: Nov 18, 1996 | RLD: Yes | RS: No | Type: DISCN